FAERS Safety Report 13726912 (Version 1)
Quarter: 2017Q3

REPORT INFORMATION
  Report Type: Spontaneous
  Country: US (occurrence: US)
  Receive Date: 20170707
  Receipt Date: 20170707
  Transmission Date: 20171127
  Serious: Yes (Hospitalization)
  Sender: FDA-Public Use
  Company Number: US-UNITED THERAPEUTICS-UNT-2017-007485

PATIENT
  Age: 35 Year
  Sex: Female
  Weight: 62.13 kg

DRUGS (4)
  1. REMODULIN [Suspect]
     Active Substance: TREPROSTINIL
     Dosage: 0.111 ?G/KG, CONTINUING
     Route: 041
     Dates: start: 20170627
  2. ADEMPAS [Concomitant]
     Active Substance: RIOCIGUAT
     Indication: PRODUCT USED FOR UNKNOWN INDICATION
     Dosage: 7.5 MG, DAILY
     Route: 065
  3. OPSUMIT [Concomitant]
     Active Substance: MACITENTAN
     Indication: PRODUCT USED FOR UNKNOWN INDICATION
  4. REMODULIN [Suspect]
     Active Substance: TREPROSTINIL
     Indication: PULMONARY ARTERIAL HYPERTENSION
     Dosage: 0.121 ?G/KG, CONTINUING
     Route: 058
     Dates: start: 20130726

REACTIONS (6)
  - Abdominal distension [Not Recovered/Not Resolved]
  - Fluid retention [Unknown]
  - Infusion site pain [Unknown]
  - Product use issue [Unknown]
  - Oedema peripheral [Not Recovered/Not Resolved]
  - Malabsorption from administration site [Unknown]

NARRATIVE: CASE EVENT DATE: 20170517
